FAERS Safety Report 8652967 (Version 5)
Quarter: 2013Q1

REPORT INFORMATION
  Report Type: Spontaneous
  Country: DE (occurrence: DE)
  Receive Date: 20120706
  Receipt Date: 20130129
  Transmission Date: 20140127
  Serious: Yes (Death)
  Sender: FDA-Public Use
  Company Number: DE-UCBSA-013681

PATIENT
  Age: 85 Year
  Sex: Female
  Weight: 80 kg

DRUGS (8)
  1. NEUPRO [Suspect]
     Indication: PARKINSON^S DISEASE
     Dosage: 8 MG/24 H
     Route: 062
     Dates: start: 200710, end: 20100218
  2. NEUPRO [Suspect]
     Indication: PARKINSON^S DISEASE
     Dosage: 4 MG/24 H
     Route: 062
     Dates: start: 20100219, end: 20120616
  3. SELEGILIN [Concomitant]
     Indication: PARKINSON^S DISEASE
     Dosage: DAILY DOSE: 7.5MG, DOSE PER INTAKE: 5MG, NO OF INTAKES: 1.5
     Route: 048
     Dates: start: 2005
  4. MADOPAR [Concomitant]
     Indication: PARKINSON^S DISEASE
     Route: 048
     Dates: start: 2005
  5. SIFROL [Concomitant]
     Indication: PARKINSON^S DISEASE
     Route: 048
     Dates: start: 2005
  6. COMTESS [Concomitant]
     Indication: PARKINSON^S DISEASE
     Dosage: 2 TABLETS DAILY (400)
     Route: 048
     Dates: start: 2005
  7. AMANTADIN [Concomitant]
     Indication: PARKINSON^S DISEASE
     Dosage: DOSE : 100MG, NUMBER OF INTAKES: 1/2, DAILY DOSE: 50MG
     Route: 048
  8. SERQOQUEL [Concomitant]
     Indication: HALLUCINATION
     Route: 048
     Dates: start: 20120203

REACTIONS (6)
  - Ill-defined disorder [Fatal]
  - Application site pruritus [Unknown]
  - Erythema [Recovered/Resolved]
  - Application site irritation [Unknown]
  - Immobile [Unknown]
  - Infection susceptibility increased [Unknown]
